FAERS Safety Report 5708570-8 (Version None)
Quarter: 2008Q2

REPORT INFORMATION
  Report Type: 
  Country: None (occurrence: None)
  Receive Date: 20080417
  Receipt Date: 20080410
  Transmission Date: 20081010
  Serious: Yes (Other)
  Sender: FDA-Public Use
  Company Number: FR-PFIZER INC-2008032529

PATIENT
  Age: 7 Year
  Sex: Female

DRUGS (1)
  1. GENOTONORM [Suspect]

REACTIONS (2)
  - MALAISE [None]
  - VENTRICULAR HYPERTROPHY [None]
